FAERS Safety Report 8436461-0 (Version None)
Quarter: 2012Q2

REPORT INFORMATION
  Report Type: 
  Country: None (occurrence: None)
  Receive Date: 20120607
  Receipt Date: 20120607
  Transmission Date: 20120825
  Serious: Yes (Hospitalization)
  Sender: FDA-Public Use
  Company Number: None

PATIENT
  Age: 82 Year
  Sex: Male
  Weight: 112.5 kg

DRUGS (5)
  1. EXELON [Concomitant]
  2. LITHIUM [Concomitant]
  3. TAMSULOSIN HCL [Concomitant]
  4. SIMVASTATIN [Suspect]
     Indication: CORONARY ARTERY DISEASE
     Dosage: 80 MG DAILY ORAL - PATIENT TAKING AT HOME
     Route: 048
  5. PLAVIX [Concomitant]

REACTIONS (6)
  - RHABDOMYOLYSIS [None]
  - CONFUSIONAL STATE [None]
  - AGITATION [None]
  - FALL [None]
  - RENAL FAILURE ACUTE [None]
  - SYNCOPE [None]
